FAERS Safety Report 9781014 (Version 1)
Quarter: 2013Q4

REPORT INFORMATION
  Report Type: Spontaneous
  Country: US (occurrence: None)
  Receive Date: 20131220
  Receipt Date: 20131220
  Transmission Date: 20140711
  Serious: Yes (Other)
  Sender: FDA-Public Use
  Company Number: 2013P1021969

PATIENT
  Age: 20 Year
  Sex: Female

DRUGS (6)
  1. PHENYTOIN [Concomitant]
  2. VALPROIC ACID [Concomitant]
  3. EPINEPHRINE [Concomitant]
  4. UNSPECIFIED OPIOIDS [Concomitant]
  5. UNSPECIFIED CALCIUM/MAGNESIUM REPLACEMENTS [Concomitant]
  6. AMIODARONE [Suspect]
     Indication: VENTRICULAR TACHYCARDIA

REACTIONS (2)
  - Toxicity to various agents [None]
  - Pulmonary calcification [None]
